FAERS Safety Report 7430100-3 (Version None)
Quarter: 2011Q2

REPORT INFORMATION
  Report Type: 
  Country: None (occurrence: None)
  Receive Date: 20110421
  Receipt Date: 20100416
  Transmission Date: 20111010
  Serious: No
  Sender: FDA-Public Use
  Company Number: US-ASTRAZENECA-2010SE16958

PATIENT
  Sex: Male

DRUGS (3)
  1. TOPROL-XL [Suspect]
     Route: 048
  2. TOPROL-XL [Suspect]
     Route: 048
     Dates: start: 20090101
  3. METOPROLOL TARTRATE [Suspect]
     Route: 048
     Dates: start: 20090101

REACTIONS (3)
  - SOMNOLENCE [None]
  - GAIT DISTURBANCE [None]
  - SPEECH DISORDER [None]
